FAERS Safety Report 6170740-5 (Version None)
Quarter: 2009Q2

REPORT INFORMATION
  Report Type: 
  Country: None (occurrence: None)
  Receive Date: 20090427
  Receipt Date: 20090413
  Transmission Date: 20091009
  Serious: Yes (Hospitalization)
  Sender: FDA-Public Use
  Company Number: ADE# 09-118DPR

PATIENT
  Sex: Male

DRUGS (4)
  1. DIGOXIN [Suspect]
     Indication: CARDIAC DISORDER
  2. UNSPECIFIED ANTIBIOTICS [Concomitant]
  3. NITROGLYCERIN [Concomitant]
  4. PLAVIX [Concomitant]

REACTIONS (5)
  - COORDINATION ABNORMAL [None]
  - CORONARY ARTERY OCCLUSION [None]
  - PNEUMONIA [None]
  - VENTRICULAR TACHYCARDIA [None]
  - VOMITING [None]
